FAERS Safety Report 12203479 (Version 2)
Quarter: 2016Q2

REPORT INFORMATION
  Report Type: Spontaneous
  Country: BE (occurrence: BE)
  Receive Date: 20160323
  Receipt Date: 20160408
  Transmission Date: 20160815
  Serious: Yes (Hospitalization, Other)
  Sender: FDA-Public Use
  Company Number: PHHY2016BE038187

PATIENT
  Age: 42 Year
  Sex: Female

DRUGS (1)
  1. GILENYA [Suspect]
     Active Substance: FINGOLIMOD HYDROCHLORIDE
     Indication: MULTIPLE SCLEROSIS
     Dosage: 0.5 MG, QD
     Route: 065
     Dates: start: 201411, end: 20160317

REACTIONS (8)
  - Amnesia [Unknown]
  - Balance disorder [Unknown]
  - Mood swings [Unknown]
  - Central nervous system lesion [Recovering/Resolving]
  - Blindness [Unknown]
  - Fatigue [Unknown]
  - Cognitive disorder [Unknown]
  - Optic neuritis [Recovered/Resolved]

NARRATIVE: CASE EVENT DATE: 201601
